FAERS Safety Report 14497899 (Version 3)
Quarter: 2018Q1

REPORT INFORMATION
  Report Type: Report from Study
  Country: CO (occurrence: CO)
  Receive Date: 20180207
  Receipt Date: 20180319
  Transmission Date: 20180509
  Serious: Yes (Death)
  Sender: FDA-Public Use
  Company Number: PHHO2018CO001952

PATIENT
  Age: 75 Year
  Sex: Male
  Weight: 61.9 kg

DRUGS (8)
  1. AMLODIPINE [Concomitant]
     Active Substance: AMLODIPINE BESYLATE
     Indication: HYPERTENSION
     Dosage: 5 MG, BID (24H)
     Route: 065
     Dates: start: 2009
  2. CLOPIDOGREL [Concomitant]
     Active Substance: CLOPIDOGREL BISULFATE
     Indication: ISCHAEMIC CARDIOMYOPATHY
     Dosage: 75 MG, BID (24H)
     Route: 065
     Dates: start: 201009
  3. CARVEDILOL. [Concomitant]
     Active Substance: CARVEDILOL
     Indication: ISCHAEMIC CARDIOMYOPATHY
     Dosage: 6.25 MG, BID (24H)
     Route: 065
     Dates: start: 201009
  4. PLACEBO [Suspect]
     Active Substance: UNSPECIFIED INGREDIENT
     Indication: CARDIOVASCULAR EVENT PROPHYLAXIS
     Dosage: UNK
     Route: 058
     Dates: start: 20130429, end: 20141021
  5. ENALAPRIL [Concomitant]
     Active Substance: ENALAPRIL
     Indication: HYPERTENSION
     Dosage: 20 MG, BID (12H)
     Route: 065
     Dates: start: 2009
  6. LOVASTATINE [Concomitant]
     Active Substance: LOVASTATIN
     Indication: HYPERTENSION
     Dosage: 20 MG, BID (24H)
     Route: 065
     Dates: start: 2009
  7. TRIMETAZIDINE [Concomitant]
     Active Substance: TRIMETAZIDINE
     Indication: ISCHAEMIC CARDIOMYOPATHY
     Dosage: 70 MG, BID (24H)
     Route: 065
     Dates: start: 201009
  8. CLONIDINE. [Concomitant]
     Active Substance: CLONIDINE
     Indication: HYPERTENSION
     Dosage: 100 MG, BID (24H)
     Route: 065
     Dates: start: 2009

REACTIONS (1)
  - Death [Fatal]
